FAERS Safety Report 8986332 (Version 1)
Quarter: 2012Q4

REPORT INFORMATION
  Report Type: Spontaneous
  Country: CL (occurrence: None)
  Receive Date: 20121217
  Receipt Date: 20121217
  Transmission Date: 20130627
  Serious: Yes (Other)
  Sender: FDA-Public Use
  Company Number: DSA_61305_2012

PATIENT
  Age: 60 Year
  Sex: Male

DRUGS (5)
  1. METRONIDAZOLE (METRONIDAZOLE) [Suspect]
     Indication: PRODUCT USED FOR UNKNOWN INDICATION
  2. METRONIDAZOLE (METRONIDAZOLE) [Suspect]
     Indication: PRODUCT USED FOR UNKNOWN INDICATION
  3. SPIRONOLACTONE [Concomitant]
  4. LACTULOSE [Concomitant]
  5. VITAMIN K [Concomitant]

REACTIONS (5)
  - Encephalopathy [None]
  - Ataxia [None]
  - Chorea [None]
  - Myoclonus [None]
  - Neurotoxicity [None]
